FAERS Safety Report 10282083 (Version 1)
Quarter: 2014Q3

REPORT INFORMATION
  Report Type: Spontaneous
  Country: US (occurrence: US)
  Receive Date: 20140707
  Receipt Date: 20140707
  Transmission Date: 20150326
  Serious: No
  Sender: FDA-Public Use
  Company Number: US-SA-2014SA063102

PATIENT
  Sex: Male

DRUGS (9)
  1. PRIFTIN [Suspect]
     Active Substance: RIFAPENTINE
     Indication: LATENT TUBERCULOSIS
     Route: 065
     Dates: start: 20140228, end: 20140508
  2. ACETAMINOPHEN. [Concomitant]
     Active Substance: ACETAMINOPHEN
  3. LOPRESSOR [Concomitant]
     Active Substance: METOPROLOL TARTRATE
  4. MOBIC [Concomitant]
     Active Substance: MELOXICAM
  5. VASOTEC [Concomitant]
     Active Substance: ENALAPRIL MALEATE
  6. ISONIAZID. [Concomitant]
     Active Substance: ISONIAZID
  7. DILANTIN [Concomitant]
     Active Substance: PHENYTOIN
  8. ELAVIL [Concomitant]
     Active Substance: AMITRIPTYLINE HYDROCHLORIDE
  9. VIT B6 [Concomitant]

REACTIONS (1)
  - Orthostatic hypotension [Recovered/Resolved]

NARRATIVE: CASE EVENT DATE: 20140425
